FAERS Safety Report 17226764 (Version 1)
Quarter: 2020Q1

REPORT INFORMATION
  Report Type: Report from Study
  Country: US (occurrence: US)
  Receive Date: 20200102
  Receipt Date: 20200102
  Transmission Date: 20200409
  Serious: No
  Sender: FDA-Public Use
  Company Number: US-AGIOS-1912US01531

PATIENT

DRUGS (1)
  1. TIBSOVO [Suspect]
     Active Substance: IVOSIDENIB
     Indication: ACUTE LYMPHOCYTIC LEUKAEMIA
     Dosage: 400 MILLIGRAM, QD
     Route: 048
     Dates: start: 20191120

REACTIONS (11)
  - White blood cell count decreased [Unknown]
  - Dermatitis diaper [Unknown]
  - Diarrhoea [Unknown]
  - Off label use [Unknown]
  - Myalgia [Unknown]
  - Blood creatinine increased [Unknown]
  - Fatigue [Unknown]
  - Anxiety [Unknown]
  - Back pain [Unknown]
  - Haemoglobin decreased [Unknown]
  - Anal incontinence [Unknown]
